FAERS Safety Report 6939587-3 (Version None)
Quarter: 2010Q3

REPORT INFORMATION
  Report Type: 
  Country: None (occurrence: None)
  Receive Date: 20100824
  Receipt Date: 20100715
  Transmission Date: 20110219
  Serious: Yes (Hospitalization, Other)
  Sender: FDA-Public Use
  Company Number: PHEH2008US03185

PATIENT
  Sex: Female

DRUGS (40)
  1. ZOMETA [Suspect]
     Indication: BONE DENSITY DECREASED
     Dosage: 4 MG, UNK
     Dates: start: 20041001, end: 20090501
  2. CARBOPLATIN [Concomitant]
  3. TAXOTERE [Concomitant]
  4. HERCEPTIN [Concomitant]
  5. BENADRYL ^ACHE^ [Concomitant]
  6. ACETAMINOPHEN [Concomitant]
  7. ARANESP [Concomitant]
  8. DECADRON [Concomitant]
  9. PAXIL [Concomitant]
  10. NEUPOGEN [Concomitant]
  11. NEULASTA [Concomitant]
     Dosage: 6 MG SUBCUTANEOUSLY
     Route: 058
  12. PROCRIT                            /00909301/ [Concomitant]
     Dosage: 40 K UNITS
  13. PRAVASTATIN [Concomitant]
  14. FENOFIBRATE [Concomitant]
  15. GABAPENTIN [Concomitant]
  16. CHANTIX [Concomitant]
  17. FERROUS GLUCONATE [Concomitant]
  18. ARIMIDEX [Concomitant]
  19. ZYPREXA [Concomitant]
  20. SPIRIVA [Concomitant]
  21. ALBUTEROL [Concomitant]
  22. WELLBUTRIN SR [Concomitant]
  23. TAMOXIFEN CITRATE [Concomitant]
  24. TOBREX [Concomitant]
  25. FLONASE [Concomitant]
  26. DARVOCET-N 100 [Concomitant]
  27. SKELAXIN [Concomitant]
  28. CELEXA [Concomitant]
  29. RITALIN - SLOW RELEASE [Concomitant]
     Indication: SLEEP APNOEA SYNDROME
     Dosage: 20 MG / QD
     Dates: start: 20100118
  30. DEXEDRINE ^MEDEVA^ [Concomitant]
     Dosage: 20 MG/ QD
  31. DESOXYN [Concomitant]
     Dosage: UNK
  32. ADVAIR DISKUS 100/50 [Concomitant]
     Dosage: UNK
  33. OXYCODONE [Concomitant]
     Dosage: UNK
  34. MORPHINE [Concomitant]
     Dosage: UNK
  35. ATIVAN [Concomitant]
     Dosage: UNK
  36. COMPAZINE [Concomitant]
  37. DEXAMETHASONE [Concomitant]
  38. TRASTUZUMAB [Concomitant]
  39. METHYLPREDNISOLONE [Concomitant]
  40. OXYMORPHONE [Concomitant]

REACTIONS (83)
  - ABDOMINAL PAIN UPPER [None]
  - ANAEMIA [None]
  - ANXIETY [None]
  - ARTHRALGIA [None]
  - BACK PAIN [None]
  - BONE DISORDER [None]
  - BREAST PROSTHESIS IMPLANTATION [None]
  - CERVICAL DYSPLASIA [None]
  - CERVIX CARCINOMA [None]
  - CLOSTRIDIUM DIFFICILE COLITIS [None]
  - COLITIS [None]
  - CONTINUOUS POSITIVE AIRWAY PRESSURE [None]
  - DECREASED APPETITE [None]
  - DERMATITIS CONTACT [None]
  - DIARRHOEA [None]
  - DYSARTHRIA [None]
  - DYSKINESIA [None]
  - DYSPLASIA [None]
  - DYSPNOEA [None]
  - EMOTIONAL DISTRESS [None]
  - EMPHYSEMA [None]
  - FATIGUE [None]
  - GAIT DISTURBANCE [None]
  - GALLBLADDER DISORDER [None]
  - HALLUCINATION [None]
  - HEADACHE [None]
  - HEMIPLEGIA [None]
  - HEPATIC ENZYME INCREASED [None]
  - HIATUS HERNIA [None]
  - HORDEOLUM [None]
  - HOT FLUSH [None]
  - HUMAN PAPILLOMA VIRUS TEST POSITIVE [None]
  - HYPERCHOLESTEROLAEMIA [None]
  - HYPOAESTHESIA [None]
  - HYPOPHAGIA [None]
  - IMPLANT SITE INFECTION [None]
  - INFECTION [None]
  - INJURY [None]
  - INTERVERTEBRAL DISC DISORDER [None]
  - LOOP ELECTROSURGICAL EXCISION PROCEDURE [None]
  - MALAISE [None]
  - MEDICAL DEVICE REMOVAL [None]
  - MEMORY IMPAIRMENT [None]
  - MESENTERIC VASCULAR INSUFFICIENCY [None]
  - METASTASES TO BONE [None]
  - MUSCLE SPASMS [None]
  - MUSCULOSKELETAL PAIN [None]
  - MYOPATHY [None]
  - NEUROPATHY PERIPHERAL [None]
  - NEUTROPENIA [None]
  - OEDEMA [None]
  - OESOPHAGITIS [None]
  - OSTEOARTHRITIS [None]
  - OSTEONECROSIS OF JAW [None]
  - PAIN [None]
  - PAIN IN JAW [None]
  - PANCYTOPENIA [None]
  - PARAESTHESIA [None]
  - PHYSICAL DISABILITY [None]
  - PYREXIA [None]
  - RADIATION ASSOCIATED PAIN [None]
  - RADICAL HYSTERECTOMY [None]
  - RADICULOPATHY [None]
  - RASH ERYTHEMATOUS [None]
  - REFLUX OESOPHAGITIS [None]
  - RENAL PAIN [None]
  - RESPIRATORY DEPRESSION [None]
  - SALIVARY GLAND ENLARGEMENT [None]
  - SCAR [None]
  - SEDATION [None]
  - SINUSITIS [None]
  - SLEEP APNOEA SYNDROME [None]
  - SOMNOLENCE [None]
  - SPINAL NERVE STIMULATOR IMPLANTATION [None]
  - SPINAL OSTEOARTHRITIS [None]
  - SUICIDAL IDEATION [None]
  - SURGERY [None]
  - SWELLING FACE [None]
  - TOOTHACHE [None]
  - TRISMUS [None]
  - VIITH NERVE PARALYSIS [None]
  - WALKING AID USER [None]
  - WEIGHT INCREASED [None]
